FAERS Safety Report 14525455 (Version 3)
Quarter: 2018Q2

REPORT INFORMATION
  Report Type: Report from Study
  Country: ZA (occurrence: ZA)
  Receive Date: 20180213
  Receipt Date: 20180515
  Transmission Date: 20180711
  Serious: Yes (Death, Congenital Anomaly, Other)
  Sender: FDA-Public Use
  Company Number: ZA-MYLANLABS-2018M1008429

PATIENT
  Age: 11 Day
  Sex: Female

DRUGS (2)
  1. RALTEGRAVIR. [Suspect]
     Active Substance: RALTEGRAVIR
     Indication: HIV INFECTION
     Dosage: 1 TAB/CAP
     Route: 064
     Dates: start: 20170906
  2. TENOFOVIR DISOPROXIL FUMARATE/EMTRICITABINE TABLETS 300/200MG [Suspect]
     Active Substance: EMTRICITABINE\TENOFOVIR DISOPROXIL FUMARATE
     Indication: HIV INFECTION
     Dosage: 1 DF, UNK
     Route: 064
     Dates: start: 20170906

REACTIONS (5)
  - Foetal exposure during pregnancy [Unknown]
  - Neonatal respiratory arrest [Fatal]
  - Loss of consciousness [Fatal]
  - Cleft lip [Unknown]
  - Hepatotoxicity [Recovered/Resolved]

NARRATIVE: CASE EVENT DATE: 20180126
